FAERS Safety Report 25833314 (Version 2)
Quarter: 2025Q4

REPORT INFORMATION
  Report Type: Report from Study
  Country: US (occurrence: US)
  Receive Date: 20250922
  Receipt Date: 20251013
  Transmission Date: 20260118
  Serious: No
  Sender: MALLINCKRODT
  Company Number: US-MALLINCKRODT-MNK202505788

PATIENT
  Age: 70 Year
  Sex: Female

DRUGS (2)
  1. CORTICOTROPIN [Suspect]
     Active Substance: CORTICOTROPIN
     Indication: Systemic lupus erythematosus
     Dosage: 80 UNITS
     Route: 058
     Dates: start: 20250911
  2. HEMOGLOBIN [Concomitant]
     Active Substance: HEMOGLOBIN
     Dosage: UNKNOWN

REACTIONS (4)
  - Erythema [Not Recovered/Not Resolved]
  - Face oedema [Not Recovered/Not Resolved]
  - Vomiting [Recovered/Resolved]
  - Blood glucose increased [Unknown]

NARRATIVE: CASE EVENT DATE: 20250901
